FAERS Safety Report 4423999-6 (Version None)
Quarter: 2004Q3

REPORT INFORMATION
  Report Type: 
  Country: None (occurrence: None)
  Receive Date: 20040806
  Receipt Date: 20040716
  Transmission Date: 20050211
  Serious: Yes (Hospitalization)
  Sender: FDA-Public Use
  Company Number: FR_040704449

PATIENT
  Age: 78 Year
  Sex: Female
  Weight: 42 kg

DRUGS (8)
  1. PROZAC [Suspect]
     Indication: DYSTHYMIC DISORDER
     Dates: start: 20040408, end: 20040420
  2. COAPROVEL [Concomitant]
  3. SERMION (NICERGOLINE) [Concomitant]
  4. ZOLPIDEM TARTRATE [Concomitant]
  5. XANAX (ALPRAZOLAM DUM) [Concomitant]
  6. PIROXICAM [Concomitant]
  7. VASTAREL (TRIMETAZIDINE HYDROCHLORIDE) [Concomitant]
  8. PISACLEDINE [Concomitant]

REACTIONS (3)
  - ABDOMINAL PAIN [None]
  - DRUG INTERACTION [None]
  - HYPONATRAEMIA [None]
